FAERS Safety Report 7772743-3 (Version None)
Quarter: 2011Q3

REPORT INFORMATION
  Report Type: 
  Country: None (occurrence: None)
  Receive Date: 20110922
  Receipt Date: 20101108
  Transmission Date: 20111222
  Serious: No
  Sender: FDA-Public Use
  Company Number: US-ASTRAZENECA-2010SE53346

PATIENT
  Sex: Male

DRUGS (4)
  1. SEROQUEL [Suspect]
     Indication: BIPOLAR DISORDER
     Route: 048
  2. SEROQUEL [Suspect]
     Indication: SCHIZOPHRENIA
     Route: 048
  3. SEROQUEL [Suspect]
     Route: 048
  4. SEROQUEL [Suspect]
     Route: 048

REACTIONS (7)
  - CHILLS [None]
  - DRUG DOSE OMISSION [None]
  - BRUXISM [None]
  - WEIGHT DECREASED [None]
  - MUSCLE TWITCHING [None]
  - NAUSEA [None]
  - PSYCHOTIC BEHAVIOUR [None]
